FAERS Safety Report 7812388-X (Version None)
Quarter: 2011Q4

REPORT INFORMATION
  Report Type: 
  Country: None (occurrence: None)
  Receive Date: 20111013
  Receipt Date: 20111011
  Transmission Date: 20120403
  Serious: Yes (Life-Threatening, Other)
  Sender: FDA-Public Use
  Company Number: RU-US-EMD SERONO, INC.-7043040

PATIENT
  Sex: Male
  Weight: 60 kg

DRUGS (7)
  1. REBIF [Suspect]
     Route: 058
     Dates: start: 20100903, end: 20100915
  2. REBIF [Suspect]
     Indication: MULTIPLE SCLEROSIS
     Route: 058
     Dates: start: 20100820, end: 20100901
  3. PLACEBO [Suspect]
     Indication: MULTIPLE SCLEROSIS
     Route: 048
     Dates: start: 20100201, end: 20100205
  4. PLACEBO [Suspect]
     Route: 048
     Dates: start: 20100305, end: 20100309
  5. PLACEBO [Suspect]
     Route: 048
     Dates: start: 20100403, end: 20100407
  6. PLACEBO [Suspect]
     Route: 048
     Dates: start: 20100430, end: 20100504
  7. REBIF [Suspect]
     Route: 058
     Dates: start: 20100917, end: 20110214

REACTIONS (14)
  - ERYSIPELAS [None]
  - RED BLOOD CELL COUNT DECREASED [None]
  - LIMB INJURY [None]
  - HAEMOGLOBIN DECREASED [None]
  - PLATELET COUNT INCREASED [None]
  - INJECTION SITE NECROSIS [None]
  - RELAPSING-REMITTING MULTIPLE SCLEROSIS [None]
  - SKIN GRAFT [None]
  - ELECTROCARDIOGRAM REPOLARISATION ABNORMALITY [None]
  - WOUND ABSCESS [None]
  - BALANCE DISORDER [None]
  - FALL [None]
  - CEREBELLAR SYNDROME [None]
  - RED BLOOD CELL SEDIMENTATION RATE INCREASED [None]
